FAERS Safety Report 9975434 (Version 1)
Quarter: 2014Q1

REPORT INFORMATION
  Report Type: Report from Study
  Country: US (occurrence: US)
  Receive Date: 20140306
  Receipt Date: 20140306
  Transmission Date: 20141002
  Serious: No
  Sender: FDA-Public Use
  Company Number: US-ABBVIE-13P-163-1155564-00

PATIENT
  Age: 64 Year
  Sex: Male

DRUGS (50)
  1. HUMIRA [Suspect]
     Indication: PSORIATIC ARTHROPATHY
     Dates: start: 20130915
  2. HUMIRA [Suspect]
     Dates: start: 20131006
  3. ACETAMINOPHEN [Concomitant]
     Indication: PAIN
     Dosage: AT BEDTIME
  4. BENADRYL [Concomitant]
     Indication: RHINITIS ALLERGIC
     Dosage: 50 MG AT BEDTIME PLUS THREE TIMES A DAY AS NEEDED
  5. BENADRYL [Concomitant]
     Indication: PRURITUS
  6. BENADRYL [Concomitant]
     Indication: PAROTITIS
  7. CALCIUM [Concomitant]
     Indication: VITAMIN SUPPLEMENTATION
  8. MAGNESIUM [Concomitant]
     Indication: VITAMIN SUPPLEMENTATION
  9. ZINC [Concomitant]
     Indication: VITAMIN SUPPLEMENTATION
  10. BORON [Concomitant]
     Indication: VITAMIN SUPPLEMENTATION
     Dosage: 3 MG DAILY
  11. CHROMIUM PICOLINATE [Concomitant]
     Indication: BLOOD GLUCOSE
     Dosage: 200 MCG DAILY
  12. CHROMIUM PICOLINATE [Concomitant]
     Indication: DIABETES MELLITUS
  13. CINNAMON BARK [Concomitant]
     Indication: BLOOD GLUCOSE
  14. COENZYME Q10 [Concomitant]
     Indication: PRODUCT USED FOR UNKNOWN INDICATION
     Dosage: 300 MG DAILY
  15. UBIQUINOL [Concomitant]
     Indication: MUSCLE DISORDER
  16. UBIQUINOL [Concomitant]
     Indication: HYPERTENSION
  17. COZAAR [Concomitant]
     Indication: HYPERTENSION
     Dosage: 100 MG DAILY
  18. FLAX SEED OIL [Concomitant]
     Indication: BLOOD CHOLESTEROL INCREASED
  19. FLAX SEED OIL [Concomitant]
     Indication: BLOOD TRIGLYCERIDES
  20. FLEXERIL [Concomitant]
     Indication: MUSCLE TIGHTNESS
     Dosage: 5 MG TWO AT BEDITME, ONE UP TO THREE TIMES A DAY AS NEEDED
  21. FLEXERIL [Concomitant]
     Indication: PAIN
  22. GINKO BILOBA [Concomitant]
     Indication: MEMORY IMPAIRMENT
  23. GINKO BILOBA [Concomitant]
     Indication: ANGIOPATHY
  24. GLUCOVANCE [Concomitant]
     Indication: DIABETES MELLITUS
     Dosage: 2.5/500 MG FOUR TIMES A DAY
  25. HYDROMORPHONE [Concomitant]
     Indication: PAIN
  26. JANUVIA [Concomitant]
     Indication: DIABETES MELLITUS
     Dosage: 100 MG DAILY
  27. MECLIZINE [Concomitant]
     Indication: VERTIGO
     Dosage: 12.5 MG DAILY TWO TABLETS THREE TIMES A DAY AS NEEDED
  28. METHODONE [Concomitant]
     Indication: PAIN
     Dosage: 10 MG DAILY
  29. MULTIVITAMIN [Concomitant]
     Indication: ROUTINE HEALTH MAINTENANCE
     Dosage: DAILY
  30. PASSION FLOWER [Concomitant]
     Indication: INSOMNIA
     Dosage: 1000 MG ONCE TO FOUR DAILY AS NEEDED
  31. PHOSPHATIDYLSERINE [Concomitant]
     Indication: MEMORY IMPAIRMENT
  32. PHOSPHATIDYLSERINE [Concomitant]
     Indication: POLIOMYELITIS
  33. PHYTOSTEROLS NOS [Concomitant]
     Indication: PRODUCT USED FOR UNKNOWN INDICATION
  34. CAMPESTEROL [Concomitant]
     Indication: BENIGN PROSTATIC HYPERPLASIA
  35. STIGMASTEROL [Concomitant]
     Indication: BENIGN PROSTATIC HYPERPLASIA
  36. SAW PALMETTO [Concomitant]
     Indication: BENIGN PROSTATIC HYPERPLASIA
     Dosage: 320 MG DAILY
  37. SERRAPETTASE [Concomitant]
     Indication: PEYRONIE^S DISEASE
  38. SERRAPETTASE [Concomitant]
     Indication: INFLAMMATION
  39. TEGRETROL [Concomitant]
     Indication: CONVULSION
  40. VERAPMIL [Concomitant]
     Indication: HYPERTENSION
     Dosage: BEDTIME
  41. VINPOCETINE [Concomitant]
     Indication: TINNITUS
     Dosage: 40 MG IN DIVIDED DOSE
  42. VINPOCETINE [Concomitant]
     Indication: MEMORY IMPAIRMENT
  43. VITAMIN B12 [Concomitant]
     Indication: PRODUCT USED FOR UNKNOWN INDICATION
  44. VITAMIN C [Concomitant]
     Indication: PRODUCT USED FOR UNKNOWN INDICATION
  45. VITAMIN D [Concomitant]
     Indication: PRODUCT USED FOR UNKNOWN INDICATION
  46. VITAMIN 3 [Concomitant]
     Indication: PROPHYLAXIS
  47. ZANTAC [Concomitant]
     Indication: GASTROOESOPHAGEAL REFLUX DISEASE
  48. ZANTAC [Concomitant]
     Indication: GASTRITIS EROSIVE
  49. ZOFRAN [Concomitant]
     Indication: NAUSEA
  50. ZYRTEC [Concomitant]
     Indication: RHINITIS ALLERGIC
     Dosage: 10 MG DAILY AND BEDTIME

REACTIONS (3)
  - Heat exhaustion [Unknown]
  - Psoriasis [Recovering/Resolving]
  - Skin warm [Recovering/Resolving]
